FAERS Safety Report 6144808-3 (Version None)
Quarter: 2009Q2

REPORT INFORMATION
  Report Type: 
  Country: None (occurrence: None)
  Receive Date: 20090406
  Receipt Date: 20090324
  Transmission Date: 20091009
  Serious: No
  Sender: FDA-Public Use
  Company Number: AU-ELI_LILLY_AND_COMPANY-AU200902000296

PATIENT
  Age: 50 Year
  Sex: Female

DRUGS (4)
  1. CYMBALTA [Suspect]
     Indication: DEPRESSION
     Dosage: 60 MG, UNKNOWN
     Route: 065
     Dates: start: 20090121, end: 20090128
  2. XANAX [Concomitant]
     Indication: ANXIETY
     Dosage: 1 MG, 2/D
     Route: 065
  3. OROXINE [Concomitant]
     Indication: HYPOTHYROIDISM
     Dosage: 100 MG, UNKNOWN
     Route: 065
  4. LOSEC [Concomitant]
     Indication: REFLUX OESOPHAGITIS
     Dosage: 20 MG, UNKNOWN
     Route: 065

REACTIONS (12)
  - DIARRHOEA [None]
  - EYELID OEDEMA [None]
  - FACE OEDEMA [None]
  - FATIGUE [None]
  - HEADACHE [None]
  - IRRITABILITY [None]
  - NAUSEA [None]
  - PALPITATIONS [None]
  - PARAESTHESIA [None]
  - TREMOR [None]
  - VERTIGO [None]
  - YELLOW SKIN [None]
